FAERS Safety Report 4959315-0 (Version None)
Quarter: 2006Q1

REPORT INFORMATION
  Report Type: 
  Country: None (occurrence: None)
  Receive Date: 20060201
  Receipt Date: 20051215
  Transmission Date: 20060701
  Serious: No
  Sender: FDA-Public Use
  Company Number: 2005PV005268

PATIENT
  Age: 54 Year
  Sex: Female

DRUGS (5)
  1. BYETTA [Suspect]
     Indication: DIABETES MELLITUS NON-INSULIN-DEPENDENT
     Dosage: 5 MCG
     Dates: start: 20051014, end: 20051130
  2. GLUCOPHAGE XR [Concomitant]
  3. CAPTOPRIL [Concomitant]
  4. AVANDIA [Concomitant]
  5. ACTOPLUS [Concomitant]

REACTIONS (4)
  - FEELING ABNORMAL [None]
  - INJECTION SITE IRRITATION [None]
  - MUSCULAR WEAKNESS [None]
  - PAIN [None]
